FAERS Safety Report 4509150-2 (Version None)
Quarter: 2004Q4

REPORT INFORMATION
  Report Type: 
  Country: None (occurrence: None)
  Receive Date: 20041025
  Receipt Date: 20040806
  Transmission Date: 20050328
  Serious: Yes (Other)
  Sender: FDA-Public Use
  Company Number: US-JNJFOC-20040802797

PATIENT
  Age: 54 Year
  Sex: Female

DRUGS (10)
  1. INFLIXIMAB (INFLIXIMAB, RECOMBINANT) LYOPHILIZED POWDER [Suspect]
     Indication: RHEUMATOID ARTHRITIS
     Dosage: INTRAVENOUS
     Route: 042
     Dates: start: 20001115
  2. METHOTREXATE [Concomitant]
  3. TOPROL ( ) METOPROLOL SUCCINATE [Concomitant]
  4. PREMPRO 14/14 [Concomitant]
  5. CELEBREX [Concomitant]
  6. FOLIC ACID [Concomitant]
  7. PREVACID [Concomitant]
  8. FOSAMAX [Concomitant]
  9. PRED FORTE EYE DROPS (PREDNISONE ACETATE) [Concomitant]
  10. DOVONEX (CALCIPOTRIOL) CREAM [Concomitant]

REACTIONS (1)
  - BASAL CELL CARCINOMA [None]
